FAERS Safety Report 6427612-8 (Version None)
Quarter: 2009Q4

REPORT INFORMATION
  Report Type: 
  Country: None (occurrence: None)
  Receive Date: 20091104
  Receipt Date: 20091023
  Transmission Date: 20100525
  Serious: Yes (Other)
  Sender: FDA-Public Use
  Company Number: US-JNJCH-2009028305

PATIENT
  Age: 55 Year
  Sex: Female
  Weight: 83.9 kg

DRUGS (5)
  1. BENADRYL [Suspect]
     Indication: PRURITUS GENERALISED
     Dosage: TEXT:1 TABLET 1X DAILY
     Route: 048
  2. XANAX [Concomitant]
     Indication: DRUG USE FOR UNKNOWN INDICATION
     Dosage: TEXT:UNSPECIFIED
     Route: 065
  3. DRUG, UNSPECIFIED [Concomitant]
     Indication: POST-TRAUMATIC STRESS DISORDER
     Dosage: TEXT:UNSPECIFIED
     Route: 065
  4. DRUG, UNSPECIFIED [Concomitant]
     Indication: HYPERCHOLESTEROLAEMIA
     Dosage: TEXT:UNSPECIFIED
     Route: 065
  5. ANTITHYROID PREPARATIONS [Concomitant]
     Indication: THYROID DISORDER
     Dosage: TEXT:UNSPECIFIED
     Route: 065

REACTIONS (4)
  - ACCIDENT [None]
  - BALANCE DISORDER [None]
  - OFF LABEL USE [None]
  - SOMNOLENCE [None]
